FAERS Safety Report 7519489-4 (Version None)
Quarter: 2011Q2

REPORT INFORMATION
  Report Type: 
  Country: None (occurrence: None)
  Receive Date: 20110602
  Receipt Date: 20110525
  Transmission Date: 20111010
  Serious: Yes (Hospitalization)
  Sender: FDA-Public Use
  Company Number: JP-MERCK-1105USA02359

PATIENT
  Age: 74 Year
  Sex: Female

DRUGS (10)
  1. LAMISIL [Suspect]
     Indication: ONYCHOMYCOSIS
     Route: 048
     Dates: end: 20110505
  2. TROXSIN [Concomitant]
     Route: 048
  3. ACTOS [Concomitant]
     Indication: DIABETES MELLITUS
     Route: 048
  4. LANSOPRAZOLE [Concomitant]
     Route: 048
  5. FOSAMAX [Suspect]
     Indication: OSTEOPOROSIS
     Route: 048
     Dates: end: 20110505
  6. PREDNISOLONE [Concomitant]
     Route: 048
     Dates: end: 20110505
  7. HYZAAR [Suspect]
     Indication: HYPERTENSION
     Route: 048
     Dates: end: 20110505
  8. ASPIRIN [Concomitant]
     Route: 048
  9. AMLODIPINE BESYLATE [Suspect]
     Indication: HYPERTENSION
     Route: 048
     Dates: end: 20110505
  10. VOGLIBOSE [Concomitant]
     Indication: DIABETES MELLITUS
     Route: 048

REACTIONS (1)
  - RHABDOMYOLYSIS [None]
